FAERS Safety Report 7361073-X (Version None)
Quarter: 2011Q1

REPORT INFORMATION
  Report Type: 
  Country: None (occurrence: None)
  Receive Date: 20110318
  Receipt Date: 20110128
  Transmission Date: 20110831
  Serious: No
  Sender: FDA-Public Use
  Company Number: US-BAYER-2011-022013

PATIENT
  Sex: Female
  Weight: 74 kg

DRUGS (4)
  1. VITAMIN B [Concomitant]
     Indication: VITAMIN SUPPLEMENTATION
     Dosage: UNK
  2. FISH OIL [Concomitant]
     Indication: VITAMIN SUPPLEMENTATION
     Dosage: UNK
  3. VITAMIN D [Concomitant]
     Indication: VITAMIN SUPPLEMENTATION
     Dosage: UNK
  4. ALEVE (CAPLET) [Suspect]
     Dosage: 2 DF, BID, BOTTLE COUNT 40S
     Route: 048
     Dates: start: 20101201, end: 20110101

REACTIONS (1)
  - TINNITUS [None]
